FAERS Safety Report 18147331 (Version 2)
Quarter: 2020Q3

REPORT INFORMATION
  Report Type: Spontaneous
  Country: US (occurrence: US)
  Receive Date: 20200813
  Receipt Date: 20200918
  Transmission Date: 20201103
  Serious: No
  Sender: FDA-Public Use
  Company Number: US-SLATE RUN PHARMACEUTICALS-20US000250

PATIENT

DRUGS (3)
  1. EPTIFIBATIDE. [Suspect]
     Active Substance: EPTIFIBATIDE
     Dosage: 0.5 MICROGRAM PER KILOGRAM
     Route: 042
  2. EPTIFIBATIDE. [Suspect]
     Active Substance: EPTIFIBATIDE
     Dosage: 0.5 MICROGRAM PER KILOGRAM
     Route: 042
     Dates: start: 20200805
  3. EPTIFIBATIDE. [Suspect]
     Active Substance: EPTIFIBATIDE
     Indication: CEREBROVASCULAR ACCIDENT
     Dosage: 0.5 MICROGRAM PER KILOGRAM
     Route: 042

REACTIONS (4)
  - Off label use [Unknown]
  - Product container issue [Unknown]
  - Product preparation issue [Unknown]
  - Product administration error [Unknown]

NARRATIVE: CASE EVENT DATE: 20200805
